FAERS Safety Report 11825677 (Version 1)
Quarter: 2015Q4

REPORT INFORMATION
  Report Type: Spontaneous
  Country: US (occurrence: US)
  Receive Date: 20151211
  Receipt Date: 20151211
  Transmission Date: 20160305
  Serious: No
  Sender: FDA-Public Use
  Company Number: US-JNJFOC-20150808822

PATIENT
  Age: 78 Year
  Sex: Male

DRUGS (6)
  1. ASPIRIN. [Concomitant]
     Active Substance: ASPIRIN
  2. NORVASC [Concomitant]
     Active Substance: AMLODIPINE BESYLATE
  3. SIMVASTATIN. [Concomitant]
     Active Substance: SIMVASTATIN
  4. GABAPENTIN. [Concomitant]
     Active Substance: GABAPENTIN
  5. IMBRUVICA [Suspect]
     Active Substance: IBRUTINIB
     Indication: WALDENSTROM^S MACROGLOBULINAEMIA
     Route: 048
     Dates: start: 20150515, end: 20150714
  6. TOPROL XL [Concomitant]
     Active Substance: METOPROLOL SUCCINATE

REACTIONS (8)
  - Dysgeusia [Recovering/Resolving]
  - Dizziness [Unknown]
  - Malaise [Unknown]
  - Rhinorrhoea [Not Recovered/Not Resolved]
  - Fatigue [Unknown]
  - Rhinitis [Not Recovered/Not Resolved]
  - Sinusitis [Not Recovered/Not Resolved]
  - Productive cough [Not Recovered/Not Resolved]

NARRATIVE: CASE EVENT DATE: 2015
